FAERS Safety Report 4662575-7 (Version None)
Quarter: 2005Q2

REPORT INFORMATION
  Report Type: 
  Country: None (occurrence: None)
  Receive Date: 20050513
  Receipt Date: 20050513
  Transmission Date: 20051028
  Serious: Yes (Hospitalization)
  Sender: FDA-Public Use
  Company Number: None

PATIENT
  Age: 61 Year
  Sex: Female
  Weight: 72.5 kg

DRUGS (2)
  1. CAPECITABINE  3500MG [Suspect]
     Indication: BREAST CANCER METASTATIC
     Dosage: QD  DAYS 1-14 ORAL
     Route: 048
     Dates: start: 20050414, end: 20050427
  2. IRESSA [Suspect]
     Indication: BREAST CANCER METASTATIC
     Dosage: QD DAYS 1-21 ORAL
     Route: 048
     Dates: start: 20050414, end: 20050428

REACTIONS (8)
  - ANOREXIA [None]
  - DEHYDRATION [None]
  - DIARRHOEA [None]
  - NAUSEA [None]
  - ORAL INTAKE REDUCED [None]
  - PAIN IN EXTREMITY [None]
  - STOMATITIS [None]
  - VOMITING [None]
